FAERS Safety Report 8607383 (Version 3)
Quarter: 2014Q1

REPORT INFORMATION
  Report Type: Spontaneous
  Country: US (occurrence: US)
  Receive Date: 20120611
  Receipt Date: 20140124
  Transmission Date: 20141002
  Serious: Yes (Hospitalization, Disabling, Other)
  Sender: FDA-Public Use
  Company Number: US-ASTRAZENECA-2012SE34826

PATIENT
  Age: 19182 Day
  Sex: Female
  Weight: 52.6 kg

DRUGS (19)
  1. NEXIUM [Suspect]
     Indication: GASTROOESOPHAGEAL REFLUX DISEASE
     Route: 048
     Dates: start: 2000, end: 2010
  2. NEXIUM [Suspect]
     Indication: GASTROOESOPHAGEAL REFLUX DISEASE
     Route: 048
  3. NEXIUM [Suspect]
     Indication: GASTROOESOPHAGEAL REFLUX DISEASE
     Route: 048
     Dates: start: 20100127
  4. PREVACID [Concomitant]
     Indication: DYSPEPSIA
     Dates: start: 1998
  5. PREVACID [Concomitant]
     Indication: GASTROOESOPHAGEAL REFLUX DISEASE
     Dates: start: 1998
  6. ZANTAC [Concomitant]
     Dosage: 2 TIMES DAILY
  7. PEPCID [Concomitant]
     Dates: start: 1975, end: 2010
  8. CALCIUM [Concomitant]
  9. TUMS [Concomitant]
  10. ASPIRIN [Concomitant]
  11. PRILOSEC [Concomitant]
  12. ALKA SELTZER [Concomitant]
  13. MILK MAGNESIA [Concomitant]
  14. ROLAIDS [Concomitant]
  15. CEPHALEXIN [Concomitant]
     Dates: start: 20100126
  16. HYDROCODONE/LORTAB [Concomitant]
     Dates: start: 20100128
  17. AMLODIPINE BESYLATE [Concomitant]
     Dates: start: 20100129
  18. DIOVAN [Concomitant]
     Dates: start: 20100129
  19. VENTOLIN HFA [Concomitant]
     Dates: start: 20100129

REACTIONS (26)
  - Osteoporosis [Unknown]
  - Hand fracture [Unknown]
  - Back pain [Unknown]
  - Rib fracture [Unknown]
  - Benign bone neoplasm [Unknown]
  - Blindness unilateral [Unknown]
  - Cerebrovascular accident [Unknown]
  - Bone density decreased [Unknown]
  - Bone disorder [Unknown]
  - Ankle fracture [Unknown]
  - Gait disturbance [Unknown]
  - Dyspepsia [Unknown]
  - Hand fracture [Unknown]
  - Calcium deficiency [Unknown]
  - Glaucoma [Unknown]
  - Vitamin D deficiency [Unknown]
  - Bipolar I disorder [Unknown]
  - Arthralgia [Unknown]
  - Diarrhoea [Unknown]
  - Abdominal pain upper [Unknown]
  - Contusion [Unknown]
  - Arthritis [Unknown]
  - Limb injury [Unknown]
  - Headache [Unknown]
  - Haemorrhage [Unknown]
  - Spinal osteoarthritis [Unknown]
